FAERS Safety Report 7998393-1 (Version None)
Quarter: 2011Q4

REPORT INFORMATION
  Report Type: 
  Country: None (occurrence: None)
  Receive Date: 20111221
  Receipt Date: 20110919
  Transmission Date: 20120403
  Serious: No
  Sender: FDA-Public Use
  Company Number: US-GLAXOSMITHKLINE-A0945152A

PATIENT
  Age: 68 Year
  Sex: Male

DRUGS (4)
  1. ZOCOR [Concomitant]
  2. ACTOS [Concomitant]
  3. LOVAZA [Suspect]
     Indication: BLOOD TRIGLYCERIDES INCREASED
     Dosage: 1CAP PER DAY
     Route: 048
     Dates: start: 20110815, end: 20110815
  4. DIOVAN [Concomitant]

REACTIONS (3)
  - DYSGEUSIA [None]
  - GASTRIC DISORDER [None]
  - ERUCTATION [None]
